FAERS Safety Report 16011036 (Version 3)
Quarter: 2019Q2

REPORT INFORMATION
  Report Type: Spontaneous
  Country: IS (occurrence: IS)
  Receive Date: 20190227
  Receipt Date: 20190406
  Transmission Date: 20190711
  Serious: Yes (Hospitalization, Other)
  Sender: FDA-Public Use
  Company Number: IS-ACCORD-109249

PATIENT
  Age: 81 Year
  Sex: Female

DRUGS (11)
  1. PREGABALIN. [Suspect]
     Active Substance: PREGABALIN
     Indication: INSOMNIA
  2. OMEPRAZOLE. [Concomitant]
     Active Substance: OMEPRAZOLE
     Indication: GASTROOESOPHAGEAL REFLUX DISEASE
  3. DABIGATRAN/DABIGATRAN ETEXILATE [Concomitant]
     Indication: ATRIAL FIBRILLATION
  4. FUROSEMIDE. [Concomitant]
     Active Substance: FUROSEMIDE
     Indication: CARDIAC DISORDER
  5. ACETYLCYSTEINE. [Concomitant]
     Active Substance: ACETYLCYSTEINE
     Indication: CHRONIC OBSTRUCTIVE PULMONARY DISEASE
  6. CHLORPROTHIXENE [Suspect]
     Active Substance: CHLORPROTHIXENE
     Indication: DEPRESSION
  7. ATORVASTATIN [Concomitant]
     Active Substance: ATORVASTATIN
     Indication: CARDIAC DISORDER
  8. VERAPAMIL [Concomitant]
     Active Substance: VERAPAMIL HYDROCHLORIDE
     Indication: CARDIAC DISORDER
  9. ESCITALOPRAM [Concomitant]
     Active Substance: ESCITALOPRAM OXALATE
     Indication: ANXIETY
  10. VITAMIN B NOS [Concomitant]
     Active Substance: VITAMIN B
  11. QUETIAPINE. [Suspect]
     Active Substance: QUETIAPINE
     Indication: ANXIETY
     Route: 048

REACTIONS (8)
  - Vertigo [Unknown]
  - Dry mouth [Unknown]
  - Fall [Unknown]
  - Gait disturbance [Unknown]
  - Dysuria [Unknown]
  - Dizziness [Unknown]
  - Malaise [Unknown]
  - Feeling abnormal [Unknown]
